FAERS Safety Report 9693012 (Version 1)
Quarter: 2013Q4

REPORT INFORMATION
  Report Type: Spontaneous
  Country: DK (occurrence: FR)
  Receive Date: 20131118
  Receipt Date: 20131118
  Transmission Date: 20140711
  Serious: Yes (Life-Threatening)
  Sender: FDA-Public Use
  Company Number: FR-FRI-1000051402

PATIENT
  Age: 36 Year
  Sex: Female

DRUGS (1)
  1. DINOPROSTONE [Suspect]
     Indication: LABOUR INDUCTION
     Dosage: 0.05 MG
     Route: 067
     Dates: start: 20131103, end: 20131103

REACTIONS (1)
  - Anaphylactic shock [Recovered/Resolved]
